FAERS Safety Report 16930189 (Version 1)
Quarter: 2019Q4

REPORT INFORMATION
  Report Type: Spontaneous
  Country: US (occurrence: US)
  Receive Date: 20190826
  Receipt Date: 20190826
  Transmission Date: 20200122
  Serious: Yes (Hospitalization)
  Sender: FDA-Public Use
  Company Number: None

PATIENT
  Age: 83 Year
  Sex: Male

DRUGS (4)
  1. INLYTA [Suspect]
     Active Substance: AXITINIB
     Indication: RENAL CANCER
     Route: 048
     Dates: start: 201908
  2. KEYTRUDA [Concomitant]
     Active Substance: PEMBROLIZUMAB
  3. ELIQUIS [Concomitant]
     Active Substance: APIXABAN
  4. LOSARTAN. [Concomitant]
     Active Substance: LOSARTAN

REACTIONS (2)
  - Insomnia [None]
  - Cystitis [None]

NARRATIVE: CASE EVENT DATE: 20190826
